FAERS Safety Report 7340095-9 (Version None)
Quarter: 2011Q1

REPORT INFORMATION
  Report Type: 
  Country: None (occurrence: None)
  Receive Date: 20110309
  Receipt Date: 20110309
  Transmission Date: 20110831
  Serious: Yes (Hospitalization, Other)
  Sender: FDA-Public Use
  Company Number: PHHO2008JP14791

PATIENT
  Sex: Female
  Weight: 48 kg

DRUGS (3)
  1. ROHYPNOL [Concomitant]
  2. DEPAS [Concomitant]
  3. FTY [Suspect]
     Indication: MULTIPLE SCLEROSIS
     Dosage: 0.5 MG, UNK
     Route: 048
     Dates: start: 20081203, end: 20081206

REACTIONS (13)
  - HEADACHE [None]
  - NUCLEAR MAGNETIC RESONANCE IMAGING ABNORMAL [None]
  - MUSCULOSKELETAL DISCOMFORT [None]
  - CHEST DISCOMFORT [None]
  - DYSPNOEA [None]
  - MULTIPLE SCLEROSIS RELAPSE [None]
  - SINUS BRADYCARDIA [None]
  - SOMNOLENCE [None]
  - CHEST PAIN [None]
  - FALL [None]
  - MALAISE [None]
  - SWELLING FACE [None]
  - DIPLOPIA [None]
